FAERS Safety Report 4364284-0 (Version None)
Quarter: 2004Q2

REPORT INFORMATION
  Report Type: 
  Country: None (occurrence: None)
  Receive Date: 20040525
  Receipt Date: 20040315
  Transmission Date: 20050107
  Serious: Yes (Hospitalization)
  Sender: FDA-Public Use
  Company Number: DE-MERCK-0403DEU00105

PATIENT
  Age: 60 Year
  Sex: Male

DRUGS (1)
  1. VIOXX [Suspect]
     Indication: BACK PAIN
     Route: 048
     Dates: start: 20040203, end: 20040201

REACTIONS (1)
  - BILE DUCT CANCER [None]
